FAERS Safety Report 7360766-8 (Version None)
Quarter: 2011Q1

REPORT INFORMATION
  Report Type: 
  Country: None (occurrence: None)
  Receive Date: 20110318
  Receipt Date: 20110308
  Transmission Date: 20110831
  Serious: Yes (Death)
  Sender: FDA-Public Use
  Company Number: CO-SANOFI-AVENTIS-2011SA004913

PATIENT
  Sex: Male

DRUGS (2)
  1. DABIGATRAN ETEXILATE [Concomitant]
     Indication: ANTICOAGULANT THERAPY
  2. MULTAQ [Suspect]
     Indication: ATRIAL FIBRILLATION
     Route: 048

REACTIONS (4)
  - MULTI-ORGAN FAILURE [None]
  - HYPOTENSION [None]
  - ACUTE HEPATIC FAILURE [None]
  - CARDIOGENIC SHOCK [None]
